FAERS Safety Report 21073245 (Version 1)
Quarter: 2022Q3

REPORT INFORMATION
  Report Type: Spontaneous
  Country: US (occurrence: US)
  Receive Date: 20220712
  Receipt Date: 20220712
  Transmission Date: 20221026
  Serious: Yes (Hospitalization)
  Sender: FDA-Public Use
  Company Number: US-009507513-2207USA003181

PATIENT
  Age: 36 Year
  Sex: Female

DRUGS (4)
  1. CUBICIN [Suspect]
     Active Substance: DAPTOMYCIN
     Indication: Infection prophylaxis
     Dosage: THE FIRST DOSE
     Route: 042
     Dates: start: 20220706
  2. CUBICIN [Suspect]
     Active Substance: DAPTOMYCIN
     Dosage: THE SECOND DOSE
     Route: 042
     Dates: start: 20220707
  3. BENADRYL [Suspect]
     Active Substance: DIPHENHYDRAMINE HYDROCHLORIDE
     Dosage: 250 MILLIGRAM, ONCE
     Route: 048
     Dates: start: 20220706
  4. BENADRYL [Suspect]
     Active Substance: DIPHENHYDRAMINE HYDROCHLORIDE
     Dosage: ANOTHER DOSE IN THE MIDDLE OF THE DAY, AND AGAIN AT NIGTH
     Route: 048
     Dates: start: 20220707

REACTIONS (7)
  - Hypoaesthesia [Not Recovered/Not Resolved]
  - Peripheral swelling [Not Recovered/Not Resolved]
  - Pruritus [Not Recovered/Not Resolved]
  - Paraesthesia [Not Recovered/Not Resolved]
  - Ill-defined disorder [Not Recovered/Not Resolved]
  - Drug ineffective [Unknown]
  - Product dose omission issue [Unknown]

NARRATIVE: CASE EVENT DATE: 20220706
